FAERS Safety Report 21072142 (Version 1)
Quarter: 2022Q3

REPORT INFORMATION
  Report Type: Spontaneous
  Country: US (occurrence: US)
  Receive Date: 20220712
  Receipt Date: 20220712
  Transmission Date: 20221026
  Serious: No
  Sender: FDA-Public Use
  Company Number: US-PFIZER INC-202200949891

PATIENT
  Age: 55 Year
  Sex: Female

DRUGS (2)
  1. IBRANCE [Suspect]
     Active Substance: PALBOCICLIB
     Indication: Breast cancer female
     Dosage: 100 MG DAILY, FOR 21 DAYS, THEN 7 DAYS OFF
     Route: 048
     Dates: start: 20210820
  2. FASLODEX [Concomitant]
     Active Substance: FULVESTRANT
     Dosage: UNK

REACTIONS (4)
  - Product dose omission issue [Unknown]
  - Immune system disorder [Unknown]
  - White blood cell count decreased [Unknown]
  - Full blood count abnormal [Unknown]
